FAERS Safety Report 8472489-2 (Version None)
Quarter: 2012Q2

REPORT INFORMATION
  Report Type: 
  Country: None (occurrence: None)
  Receive Date: 20120627
  Receipt Date: 20120618
  Transmission Date: 20120825
  Serious: Yes (Death, Other)
  Sender: FDA-Public Use
  Company Number: IT-CELGENEUS-083-21880-12062559

PATIENT

DRUGS (1)
  1. REVLIMID [Suspect]
     Indication: LYMPHOMA
     Dosage: 25 MILLIGRAM
     Route: 048
     Dates: start: 20090527, end: 20090608

REACTIONS (5)
  - PLEURAL EFFUSION [None]
  - HYPOTONIA [None]
  - SINUS TACHYCARDIA [None]
  - ANAEMIA [None]
  - DEATH [None]
